FAERS Safety Report 8871236 (Version 5)
Quarter: 2014Q1

REPORT INFORMATION
  Report Type: Spontaneous
  Country: US (occurrence: None)
  Receive Date: 20121025
  Receipt Date: 20140304
  Transmission Date: 20141002
  Serious: Yes (Hospitalization, Other)
  Sender: FDA-Public Use
  Company Number: ADR-2012-01935

PATIENT
  Sex: Male

DRUGS (3)
  1. LIORESAL [Suspect]
     Indication: MUSCLE SPASTICITY
  2. LIORESAL [Suspect]
  3. LIORESAL [Suspect]
     Indication: BRAIN INJURY

REACTIONS (17)
  - Activities of daily living impaired [None]
  - Pain [None]
  - Sensory loss [None]
  - Muscle disorder [None]
  - Medical device complication [None]
  - Muscle spasticity [None]
  - Infection [None]
  - Device kink [None]
  - Poor personal hygiene [None]
  - Muscle rigidity [None]
  - Areflexia [None]
  - Urinary tract infection [None]
  - Device malfunction [None]
  - Drug effect incomplete [None]
  - Implant site infection [None]
  - Suture related complication [None]
  - General physical health deterioration [None]
